FAERS Safety Report 5476049-7 (Version None)
Quarter: 2007Q4

REPORT INFORMATION
  Report Type: 
  Country: None (occurrence: None)
  Receive Date: 20071003
  Receipt Date: 20070926
  Transmission Date: 20080405
  Serious: Yes (Hospitalization, Other)
  Sender: FDA-Public Use
  Company Number: PHBS2007BR15533

PATIENT
  Age: 53 Year
  Sex: Male
  Weight: 78 kg

DRUGS (3)
  1. MYFORTIC [Suspect]
     Indication: RENAL TRANSPLANT
     Route: 048
  2. ALLOPURINOL [Concomitant]
     Dosage: 100 MG, BID
  3. ALLOPURINOL [Concomitant]
     Dosage: 200 MG, BID

REACTIONS (6)
  - BLOOD PRESSURE INCREASED [None]
  - EATING DISORDER [None]
  - FEELING ABNORMAL [None]
  - GOUT [None]
  - PALLOR [None]
  - SYNCOPE [None]
